FAERS Safety Report 22087710 (Version 2)
Quarter: 2023Q1

REPORT INFORMATION
  Report Type: Spontaneous
  Country: US (occurrence: US)
  Receive Date: 20230313
  Receipt Date: 20230323
  Transmission Date: 20230417
  Serious: Yes (Death)
  Sender: FDA-Public Use
  Company Number: US-THEA-2023000376

PATIENT
  Sex: Female

DRUGS (3)
  1. COSOPT PF [Suspect]
     Active Substance: DORZOLAMIDE HYDROCHLORIDE\TIMOLOL MALEATE
     Indication: Glaucoma
     Dosage: RIGHT EYE
     Route: 047
     Dates: start: 20210202
  2. METOPROLOL [Concomitant]
     Active Substance: METOPROLOL
     Indication: Product used for unknown indication
  3. atenonol [Concomitant]
     Indication: Product used for unknown indication

REACTIONS (2)
  - Lung disorder [Fatal]
  - Cardiac disorder [Fatal]
